FAERS Safety Report 15590711 (Version 4)
Quarter: 2018Q4

REPORT INFORMATION
  Report Type: Report from Study
  Country: US (occurrence: US)
  Receive Date: 20181106
  Receipt Date: 20181128
  Transmission Date: 20190205
  Serious: Yes (Hospitalization)
  Sender: FDA-Public Use
  Company Number: PHHO2018US011606

PATIENT
  Age: 78 Year
  Sex: Female

DRUGS (14)
  1. LIDOCAINE. [Concomitant]
     Active Substance: LIDOCAINE
     Indication: ARTHRALGIA
     Dosage: 6 %, UNK
     Route: 061
     Dates: start: 20180531
  2. DYNAPEN [Suspect]
     Active Substance: DICLOXACILLIN SODIUM
     Indication: PRODUCT USED FOR UNKNOWN INDICATION
     Dosage: 500 MG, QID
     Route: 048
     Dates: start: 20180925
  3. FERROUS SULFATE. [Concomitant]
     Active Substance: FERROUS SULFATE
     Indication: ANAEMIA
     Dosage: 65 MG, TID
     Route: 065
     Dates: end: 20181002
  4. BLINDED NO TREATMENT RECEIVED [Suspect]
     Active Substance: INVESTIGATIONAL PRODUCT
     Indication: CARDIAC FAILURE
     Dosage: CODE NOT BROKEN
     Route: 048
     Dates: start: 20160630, end: 20170123
  5. BLINDED LCZ696 [Suspect]
     Active Substance: SACUBITRIL\VALSARTAN
     Indication: CARDIAC FAILURE
     Dosage: CODE NOT BROKEN
     Route: 048
     Dates: start: 20160630, end: 20170123
  6. APIXABAN [Concomitant]
     Active Substance: APIXABAN
     Indication: ATRIAL FIBRILLATION
     Dosage: 5 MG, BID
     Route: 065
     Dates: start: 20180603
  7. BLINDED PLACEBO [Suspect]
     Active Substance: INVESTIGATIONAL PRODUCT
     Indication: CARDIAC FAILURE
     Dosage: CODE NOT BROKEN
     Route: 048
     Dates: start: 20160630, end: 20170123
  8. DEMADEX [Suspect]
     Active Substance: TORSEMIDE
     Dosage: 150 MG, AM AND 100 MG, PM
     Route: 065
     Dates: start: 20181002
  9. DEMADEX [Suspect]
     Active Substance: TORSEMIDE
     Indication: FLUID RETENTION
     Dosage: 100 MG, BID
     Route: 065
     Dates: start: 20180817
  10. CIPROFLOXACIN. [Concomitant]
     Active Substance: CIPROFLOXACIN
     Indication: ARTHRITIS INFECTIVE
     Dosage: 500 MG, UNK
     Route: 048
     Dates: start: 20180529
  11. DIOVAN [Suspect]
     Active Substance: VALSARTAN
     Indication: CARDIAC FAILURE
     Dosage: CODE NOT BROKEN
     Route: 048
     Dates: start: 20160630, end: 20170123
  12. DICLOXACILLIN [Suspect]
     Active Substance: DICLOXACILLIN
     Indication: PRODUCT USED FOR UNKNOWN INDICATION
     Dosage: 500 MG, QID
     Route: 048
     Dates: start: 20180925
  13. XARELTO [Suspect]
     Active Substance: RIVAROXABAN
     Indication: PRODUCT USED FOR UNKNOWN INDICATION
     Dosage: UNK
     Route: 065
  14. AUGMENTIN [Concomitant]
     Active Substance: AMOXICILLIN\CLAVULANATE POTASSIUM
     Indication: ARTHRITIS INFECTIVE
     Dosage: 500/125 MG, BID
     Route: 048
     Dates: start: 20180529

REACTIONS (6)
  - Limb injury [Recovering/Resolving]
  - Traumatic haematoma [Recovering/Resolving]
  - Acute kidney injury [Recovering/Resolving]
  - Femur fracture [Recovered/Resolved with Sequelae]
  - Atrial fibrillation [Recovering/Resolving]
  - Staphylococcal sepsis [Recovering/Resolving]

NARRATIVE: CASE EVENT DATE: 20180410
